FAERS Safety Report 8152943-3 (Version None)
Quarter: 2012Q1

REPORT INFORMATION
  Report Type: 
  Country: None (occurrence: None)
  Receive Date: 20120215
  Receipt Date: 20120130
  Transmission Date: 20120608
  Serious: No
  Sender: FDA-Public Use
  Company Number: ENDC20120005

PATIENT
  Age: 55 Year
  Sex: Female

DRUGS (1)
  1. OXYCODONE AND ACETAMINOPHEN [Suspect]
     Indication: PAIN
     Dosage: 40/1300 MG, 4 IN 1 D, ORAL
     Route: 048
     Dates: start: 20120126

REACTIONS (1)
  - DRUG INEFFECTIVE [None]
